FAERS Safety Report 9605469 (Version 1)
Quarter: 2013Q4

REPORT INFORMATION
  Report Type: Report from Study
  Country: KR (occurrence: KR)
  Receive Date: 20131008
  Receipt Date: 20131008
  Transmission Date: 20140711
  Serious: Yes (Hospitalization)
  Sender: FDA-Public Use
  Company Number: KR-ASTRAZENECA-2013SE73010

PATIENT
  Age: 28631 Day
  Sex: Female
  Weight: 62.5 kg

DRUGS (1)
  1. BRILINTA [Suspect]
     Indication: ANGINA UNSTABLE
     Route: 048
     Dates: start: 20130829, end: 20130923

REACTIONS (1)
  - Cardiac failure [Recovered/Resolved]
